FAERS Safety Report 6773246-5 (Version None)
Quarter: 2010Q2

REPORT INFORMATION
  Report Type: 
  Country: None (occurrence: None)
  Receive Date: 20100616
  Receipt Date: 20100416
  Transmission Date: 20101027
  Serious: Yes (Hospitalization)
  Sender: FDA-Public Use
  Company Number: US-ABBOTT-10P-163-0632077-00

PATIENT

DRUGS (2)
  1. TRILIPIX [Suspect]
     Indication: DRUG USE FOR UNKNOWN INDICATION
  2. FEBUXOSTAT [Concomitant]
     Indication: GOUT

REACTIONS (3)
  - HEPATIC ENZYME INCREASED [None]
  - PANCREATITIS ACUTE [None]
  - RENAL FAILURE ACUTE [None]
